FAERS Safety Report 6684438-8 (Version None)
Quarter: 2010Q2

REPORT INFORMATION
  Report Type: 
  Country: None (occurrence: None)
  Receive Date: 20100416
  Receipt Date: 20100107
  Transmission Date: 20101027
  Serious: Yes (Life-Threatening, Hospitalization)
  Sender: FDA-Public Use
  Company Number: GXKR2010DK00589

PATIENT
  Sex: Female

DRUGS (3)
  1. METFORMIN HCL [Interacting]
     Indication: DIABETES MELLITUS
     Dosage: 850 MG, BID
     Route: 065
     Dates: start: 20090915, end: 20091218
  2. CORODIL (NGX) [Interacting]
     Indication: HYPERTENSION
     Dosage: 10 MILLIGRAM(S)
     Route: 048
     Dates: start: 20090101, end: 20091218
  3. EZETROL [Suspect]
     Indication: BLOOD CHOLESTEROL
     Dosage: 10 MG, TID
     Route: 048
     Dates: start: 20090101, end: 20091218

REACTIONS (2)
  - AZOTAEMIA [None]
  - LACTIC ACIDOSIS [None]
